FAERS Safety Report 20754939 (Version 4)
Quarter: 2024Q2

REPORT INFORMATION
  Report Type: Spontaneous
  Country: PT (occurrence: PT)
  Receive Date: 20220427
  Receipt Date: 20240528
  Transmission Date: 20240716
  Serious: Yes (Other)
  Sender: FDA-Public Use
  Company Number: PT-CELLTRION INC.-2022PT004966

PATIENT

DRUGS (10)
  1. TRASTUZUMAB [Suspect]
     Active Substance: TRASTUZUMAB
     Indication: HER2 positive breast cancer
     Dosage: 600 MG, CYCLIC
  2. TRASTUZUMAB [Suspect]
     Active Substance: TRASTUZUMAB
     Indication: Inflammatory carcinoma of the breast
     Dosage: 600 MG UNIT=NOT AVAILABLE
     Route: 065
  3. DOXORUBICIN [Concomitant]
     Active Substance: DOXORUBICIN
     Indication: HER2 positive breast cancer
     Dosage: 60 MG/M2, FOUR CYCLES
     Route: 065
  4. DOXORUBICIN [Concomitant]
     Active Substance: DOXORUBICIN
     Indication: Inflammatory carcinoma of the breast
     Dosage: 60 MILLIGRAM/M2 (FOUR CYCLES)
  5. CYCLOPHOSPHAMIDE [Concomitant]
     Active Substance: CYCLOPHOSPHAMIDE
     Indication: HER2 positive breast cancer
     Dosage: 600 MG/M2
     Route: 065
  6. CYCLOPHOSPHAMIDE [Concomitant]
     Active Substance: CYCLOPHOSPHAMIDE
     Indication: Inflammatory carcinoma of the breast
     Dosage: 600 MILLIGRAM/M2 (FOUR CYCLES)
  7. DOCETAXEL [Concomitant]
     Active Substance: DOCETAXEL\DOCETAXEL ANHYDROUS
     Indication: HER2 positive breast cancer
     Dosage: 75 MG/M2, FOUR CYCLES
     Route: 065
  8. DOCETAXEL [Concomitant]
     Active Substance: DOCETAXEL\DOCETAXEL ANHYDROUS
     Indication: Inflammatory carcinoma of the breast
     Dosage: 75 MILLIGRAM/M2 (FOUR CYCLES)
  9. PERTUZUMAB [Concomitant]
     Active Substance: PERTUZUMAB
     Indication: HER2 positive breast cancer
     Dosage: 840 MILLIGRAM (LOADING DOSE)
     Route: 065
  10. PERTUZUMAB [Concomitant]
     Active Substance: PERTUZUMAB
     Indication: Inflammatory carcinoma of the breast
     Dosage: 420 MILLIGRAM

REACTIONS (8)
  - Fall [Unknown]
  - Vasogenic cerebral oedema [Recovering/Resolving]
  - Central nervous system lesion [Recovering/Resolving]
  - HER2 positive breast cancer [Recovered/Resolved]
  - Metastases to central nervous system [Recovered/Resolved]
  - Cardiotoxicity [Recovered/Resolved]
  - Off label use [Unknown]
  - Disease recurrence [Unknown]
